FAERS Safety Report 20097359 (Version 1)
Quarter: 2021Q4

REPORT INFORMATION
  Report Type: Report from Study
  Country: JP (occurrence: JP)
  Receive Date: 20211122
  Receipt Date: 20211122
  Transmission Date: 20220303
  Serious: Yes (Death, Hospitalization, Other)
  Sender: FDA-Public Use
  Company Number: JP-002147023-NVSJ2021JP018443

PATIENT

DRUGS (13)
  1. RUXOLITINIB [Suspect]
     Active Substance: RUXOLITINIB
     Indication: Myelofibrosis
     Dosage: 5 MG, BID
     Route: 048
     Dates: start: 20160204, end: 20160301
  2. RUXOLITINIB [Suspect]
     Active Substance: RUXOLITINIB
     Dosage: 5 MG, BID
     Route: 048
     Dates: start: 20160307, end: 20160313
  3. RUXOLITINIB [Suspect]
     Active Substance: RUXOLITINIB
     Dosage: 10 MG, BID
     Route: 048
     Dates: start: 20160314, end: 20160725
  4. RUXOLITINIB [Suspect]
     Active Substance: RUXOLITINIB
     Dosage: 15 MG, BID
     Route: 048
     Dates: start: 20160726
  5. CYTARABINE OCFOSFATE [Concomitant]
     Active Substance: CYTARABINE OCFOSFATE
     Indication: Myelofibrosis
     Dosage: 200 MG
     Route: 048
     Dates: start: 20160428, end: 20160504
  6. CYTARABINE OCFOSFATE [Concomitant]
     Active Substance: CYTARABINE OCFOSFATE
     Dosage: 300 MG
     Route: 048
     Dates: start: 20160505, end: 20160603
  7. CYTARABINE OCFOSFATE [Concomitant]
     Active Substance: CYTARABINE OCFOSFATE
     Dosage: 100 MG
     Route: 048
     Dates: start: 20160613, end: 20160621
  8. CYTARABINE OCFOSFATE [Concomitant]
     Active Substance: CYTARABINE OCFOSFATE
     Dosage: 150 MG
     Route: 048
     Dates: start: 20160622, end: 20160626
  9. CYTARABINE OCFOSFATE [Concomitant]
     Active Substance: CYTARABINE OCFOSFATE
     Dosage: 200 MG
     Route: 048
     Dates: start: 20160627, end: 20160708
  10. CYTARABINE OCFOSFATE [Concomitant]
     Active Substance: CYTARABINE OCFOSFATE
     Dosage: 150 MG
     Route: 048
     Dates: start: 20160709, end: 20160711
  11. CYTARABINE OCFOSFATE [Concomitant]
     Active Substance: CYTARABINE OCFOSFATE
     Dosage: 100 MG
     Route: 048
     Dates: start: 20160712, end: 20160714
  12. CYTARABINE OCFOSFATE [Concomitant]
     Active Substance: CYTARABINE OCFOSFATE
     Dosage: 150 MG
     Route: 048
     Dates: start: 20160715
  13. HUMAN RED BLOOD CELL [Concomitant]
     Active Substance: HUMAN RED BLOOD CELL
     Indication: Myelofibrosis
     Dosage: UNK
     Route: 065
     Dates: start: 20150722

REACTIONS (4)
  - Death [Fatal]
  - Haemorrhage [Unknown]
  - Pyrexia [Recovering/Resolving]
  - Splenomegaly [Unknown]

NARRATIVE: CASE EVENT DATE: 20160302
